FAERS Safety Report 13979204 (Version 1)
Quarter: 2017Q3

REPORT INFORMATION
  Report Type: Spontaneous
  Country: US (occurrence: US)
  Receive Date: 20170914
  Receipt Date: 20170914
  Transmission Date: 20171128
  Serious: No
  Sender: FDA-Public Use
  Company Number: US-ASTELLAS-2017US009417

PATIENT
  Age: 85 Year
  Sex: Male

DRUGS (2)
  1. XTANDI [Suspect]
     Active Substance: ENZALUTAMIDE
     Indication: PROSTATE CANCER
     Route: 048
     Dates: start: 20161202, end: 20170730
  2. XTANDI [Suspect]
     Active Substance: ENZALUTAMIDE
     Dosage: 40 MG, THRICE WEEKLY (MONDAY/WEDNESSDAY/FRIDAY)
     Route: 048
     Dates: start: 20170801

REACTIONS (12)
  - Hypoacusis [Recovering/Resolving]
  - Inappropriate schedule of drug administration [Unknown]
  - Hypoaesthesia [Not Recovered/Not Resolved]
  - Fatigue [Recovering/Resolving]
  - Neuropathy peripheral [Recovering/Resolving]
  - Paraesthesia [Recovering/Resolving]
  - Asthenia [Unknown]
  - Underdose [Unknown]
  - Urinary incontinence [Not Recovered/Not Resolved]
  - Dysphagia [Recovering/Resolving]
  - Mental status changes [Recovering/Resolving]
  - Fatigue [Unknown]

NARRATIVE: CASE EVENT DATE: 20170222
